FAERS Safety Report 4357095-3 (Version None)
Quarter: 2004Q2

REPORT INFORMATION
  Report Type: 
  Country: None (occurrence: None)
  Receive Date: 20040507
  Receipt Date: 20040503
  Transmission Date: 20050107
  Serious: Yes (Life-Threatening, Hospitalization, Disabling)
  Sender: FDA-Public Use
  Company Number: AU-SHR-03-012330

PATIENT
  Age: 47 Year
  Sex: Male
  Weight: 80 kg

DRUGS (4)
  1. REFLUDAN [Suspect]
     Dosage: SEE IMAGE
     Dates: start: 20030731, end: 20030731
  2. REFLUDAN [Suspect]
     Dosage: SEE IMAGE
     Dates: start: 20030731, end: 20030731
  3. INSULIN [Concomitant]
  4. AMICAR [Concomitant]

REACTIONS (5)
  - ANAPHYLACTIC REACTION [None]
  - BLINDNESS [None]
  - FLUID RETENTION [None]
  - OPTIC ATROPHY [None]
  - VASCULAR BYPASS GRAFT [None]
